FAERS Safety Report 9831751 (Version 1)
Quarter: 2014Q1

REPORT INFORMATION
  Report Type: Spontaneous
  Country: US (occurrence: US)
  Receive Date: 20140121
  Receipt Date: 20140121
  Transmission Date: 20141002
  Serious: No
  Sender: FDA-Public Use
  Company Number: US-PFIZER INC-2014013011

PATIENT
  Age: 41 Year
  Sex: Male

DRUGS (2)
  1. TESTOSTERONE CIPIONATE [Suspect]
     Dosage: UNK
  2. TESTOSTERONE CIPIONATE [Suspect]
     Dosage: UNK
     Dates: start: 201310

REACTIONS (6)
  - Diarrhoea [Unknown]
  - Abdominal pain [Unknown]
  - Anxiety [Unknown]
  - Fatigue [Unknown]
  - Drug effect incomplete [Unknown]
  - Blood testosterone decreased [Unknown]
